FAERS Safety Report 20364404 (Version 4)
Quarter: 2022Q1

REPORT INFORMATION
  Report Type: Spontaneous
  Country: US (occurrence: US)
  Receive Date: 20220121
  Receipt Date: 20220311
  Transmission Date: 20220423
  Serious: Yes (Hospitalization, Other)
  Sender: FDA-Public Use
  Company Number: US-BIOVITRUM-2022US00751

PATIENT
  Sex: Male
  Weight: 10 kg

DRUGS (10)
  1. SYNAGIS [Suspect]
     Active Substance: PALIVIZUMAB
     Indication: Premature baby
  2. OMEPRAZOLE\SODIUM BICARBONATE [Concomitant]
     Active Substance: OMEPRAZOLE\SODIUM BICARBONATE
  3. SYNAGIS [Suspect]
     Active Substance: PALIVIZUMAB
     Indication: Chronic respiratory disease
  4. SYNAGIS [Suspect]
     Active Substance: PALIVIZUMAB
     Indication: Cardiovascular disorder
  5. FERROUS SULFATE [Concomitant]
     Active Substance: FERROUS SULFATE
  6. SYNAGIS [Suspect]
     Active Substance: PALIVIZUMAB
     Indication: Low birth weight baby
  7. CAROSPIR [Concomitant]
     Active Substance: SPIRONOLACTONE
  8. HYDROCHLOROTHIAZIDE [Concomitant]
     Active Substance: HYDROCHLOROTHIAZIDE
  9. TRIAMCINOLONE [Concomitant]
     Active Substance: TRIAMCINOLONE
  10. DIURIL [Concomitant]
     Active Substance: CHLOROTHIAZIDE

REACTIONS (3)
  - Hypoxia [Recovered/Resolved]
  - Respiratory failure [Recovered/Resolved]
  - COVID-19 [Recovered/Resolved]
